FAERS Safety Report 10282704 (Version 1)
Quarter: 2014Q3

REPORT INFORMATION
  Report Type: Report from Study
  Country: IN (occurrence: IN)
  Receive Date: 20140708
  Receipt Date: 20140708
  Transmission Date: 20150326
  Serious: Yes (Death)
  Sender: FDA-Public Use
  Company Number: IN-ROCHE-1430872

PATIENT
  Age: 52 Year
  Sex: Male

DRUGS (2)
  1. EXXURA [Suspect]
     Active Substance: PEGINTERFERON ALFA-2A
     Indication: CHRONIC HEPATITIS C
     Route: 058
     Dates: start: 20140318
  2. COPEGUS [Suspect]
     Active Substance: RIBAVIRIN
     Indication: CHRONIC HEPATITIS C
     Route: 048
     Dates: start: 20140318

REACTIONS (1)
  - Liver injury [Fatal]

NARRATIVE: CASE EVENT DATE: 20140602
